FAERS Safety Report 8757978 (Version 2)
Quarter: 2012Q4

REPORT INFORMATION
  Report Type: Report from Study
  Country: GB (occurrence: GB)
  Receive Date: 20120828
  Receipt Date: 20120828
  Transmission Date: 20130627
  Serious: Yes (Disabling)
  Sender: FDA-Public Use
  Company Number: PHHO2012GB011294

PATIENT
  Age: 12 Year
  Sex: Female

DRUGS (2)
  1. DEXAMETHASONE [Suspect]
     Dosage: UNK
     Dates: start: 20110616, end: 20120809
  2. NO TREATMENT RECEIVED [Suspect]
     Dosage: No treatment received

REACTIONS (1)
  - Osteonecrosis [Not Recovered/Not Resolved]
